FAERS Safety Report 13092069 (Version 1)
Quarter: 2017Q1

REPORT INFORMATION
  Report Type: Spontaneous
  Country: US (occurrence: US)
  Receive Date: 20170106
  Receipt Date: 20170106
  Transmission Date: 20170428
  Serious: No
  Sender: FDA-Public Use
  Company Number: US-SHIRE-US201619816

PATIENT
  Sex: Female

DRUGS (3)
  1. ARTIFICIAL TEARS                   /00222401/ [Concomitant]
     Indication: DRY EYE
     Dosage: UNK, UNKNOWN
     Route: 047
  2. ARTIFICIAL TEARS                   /00222401/ [Concomitant]
     Indication: DISCOMFORT
  3. XIIDRA [Suspect]
     Active Substance: LIFITEGRAST
     Indication: DRY EYE
     Dosage: 1 GTT (5%), 2X/DAY:BID BOTH EYES
     Route: 047
     Dates: start: 2016

REACTIONS (1)
  - Instillation site reaction [Not Recovered/Not Resolved]

NARRATIVE: CASE EVENT DATE: 2016
